FAERS Safety Report 6663365-6 (Version None)
Quarter: 2010Q2

REPORT INFORMATION
  Report Type: 
  Country: None (occurrence: None)
  Receive Date: 20100401
  Receipt Date: 20100319
  Transmission Date: 20101027
  Serious: Yes (Hospitalization, Other)
  Sender: FDA-Public Use
  Company Number: CZ-BAYER-200926629GPV

PATIENT
  Age: 63 Year
  Sex: Male
  Weight: 85 kg

DRUGS (36)
  1. CAMPATH [Suspect]
     Indication: CHRONIC LYMPHOCYTIC LEUKAEMIA
     Dosage: TOTAL DAILY DOSE: 30 MG
     Route: 058
     Dates: start: 20090615, end: 20090715
  2. CAMPATH [Suspect]
     Route: 058
     Dates: start: 20090921, end: 20091030
  3. CAMPATH [Suspect]
     Dosage: TOTAL DAILY DOSE: 30 MG
     Route: 058
     Dates: start: 20090727, end: 20090826
  4. VALCYTE [Concomitant]
     Indication: VIRAL TEST POSITIVE
     Dates: start: 20090717, end: 20090724
  5. BISEPTOL [Concomitant]
     Dates: start: 20090401
  6. HYDROCHLOROTHIAZIDE [Concomitant]
     Dates: start: 20090626, end: 20090828
  7. HYDROCHLOROTHIAZIDE [Concomitant]
     Dates: start: 20090901
  8. MILURIT [Concomitant]
     Dates: start: 20090614
  9. HELICID [Concomitant]
     Dates: start: 20090618
  10. DEGAN [Concomitant]
     Dates: start: 20090622
  11. ZOVIRAX [Concomitant]
     Indication: PROPHYLAXIS
     Dates: start: 20090614, end: 20090717
  12. ZOVIRAX [Concomitant]
     Dosage: AS USED: 400 MG
     Dates: start: 20090724
  13. URSOSAN [Concomitant]
  14. SUMETROLIM [Concomitant]
     Dates: end: 20090828
  15. SUMETROLIM [Concomitant]
     Dates: start: 20090904
  16. CIPRINOL [Concomitant]
     Dates: start: 20090720, end: 20090726
  17. ZYRTEC [Concomitant]
  18. CIPHIN [Concomitant]
  19. OMEPRAZOLE [Concomitant]
     Dates: start: 20090618
  20. RED BLOOD CELLS [Concomitant]
     Dates: start: 20090723, end: 20090723
  21. RED BLOOD CELLS [Concomitant]
     Dates: start: 20090907, end: 20090907
  22. RED BLOOD CELLS [Concomitant]
     Dates: start: 20090828, end: 20090828
  23. RED BLOOD CELLS [Concomitant]
     Dates: start: 20090901, end: 20090901
  24. CETIRIZINE HCL [Concomitant]
     Dates: start: 20090723, end: 20090723
  25. HYDROCORTISON [Concomitant]
     Dates: start: 20090831, end: 20090831
  26. FUROSEMID [Concomitant]
     Dates: start: 20090902, end: 20090906
  27. ETAMSILATE [Concomitant]
     Dates: start: 20090903, end: 20090903
  28. HYDROCHLOROTHIAZIDE [Concomitant]
     Dates: start: 20090901
  29. CALCIUM [Concomitant]
     Dates: start: 20090907, end: 20090901
  30. ALOPURINOL [Concomitant]
     Dates: start: 20090614, end: 20090720
  31. COTRIM [Concomitant]
     Indication: ANTIFUNGAL PROPHYLAXIS
     Route: 048
  32. MCP HEXAL [Concomitant]
     Dosage: TOTAL DAILY DOSE: 30 MG
  33. VALGANCICLOVIR HCL [Concomitant]
     Dates: start: 20090717, end: 20090724
  34. ACYCLOVIR [Concomitant]
     Dates: start: 20090905
  35. METOCLOPRAMID [Concomitant]
     Dates: start: 20090622, end: 20091001
  36. CORSODYL [Concomitant]
     Dates: start: 20091026

REACTIONS (5)
  - ABDOMINAL PAIN [None]
  - BILE DUCT OBSTRUCTION [None]
  - CHOLANGITIS ACUTE [None]
  - DEVICE DISLOCATION [None]
  - HEPATIC FUNCTION ABNORMAL [None]
